FAERS Safety Report 9539544 (Version 3)
Quarter: 2013Q4

REPORT INFORMATION
  Report Type: Report from Study
  Country: US (occurrence: US)
  Receive Date: 20130920
  Receipt Date: 20131002
  Transmission Date: 20140711
  Serious: Yes (Hospitalization, Other)
  Sender: FDA-Public Use
  Company Number: US-ABBVIE-13P-163-1147266-00

PATIENT
  Age: 49 Year
  Sex: Male

DRUGS (2)
  1. HUMIRA [Suspect]
     Indication: CROHN^S DISEASE
     Dosage: 6 MONTHS
     Route: 058
     Dates: end: 201206
  2. HUMIRA [Suspect]
     Dates: start: 20130909

REACTIONS (18)
  - Facial pain [Unknown]
  - Swelling face [Recovering/Resolving]
  - Hypoaesthesia [Not Recovered/Not Resolved]
  - Pulmonary mass [Unknown]
  - Odynophagia [Not Recovered/Not Resolved]
  - Tongue discolouration [Not Recovered/Not Resolved]
  - Paraesthesia [Unknown]
  - Skin warm [Unknown]
  - Tongue disorder [Unknown]
  - Pneumonia [Unknown]
  - Dyspnoea [Unknown]
  - Pneumonia [Unknown]
  - Respiratory tract infection [Unknown]
  - Ear infection [Unknown]
  - Herpes zoster oticus [Recovering/Resolving]
  - Herpes virus infection [Recovering/Resolving]
  - Herpes zoster [Recovering/Resolving]
  - Facial pain [Recovering/Resolving]
